FAERS Safety Report 20429802 (Version 1)
Quarter: 2022Q1

REPORT INFORMATION
  Report Type: Spontaneous
  Country: US (occurrence: US)
  Receive Date: 20220204
  Receipt Date: 20220204
  Transmission Date: 20220423
  Serious: No
  Sender: FDA-Public Use
  Company Number: US-GSKCCFUS-Case-01285594_AE-74997

PATIENT
  Sex: Female

DRUGS (1)
  1. BECONASE AQ [Suspect]
     Active Substance: BECLOMETHASONE DIPROPIONATE MONOHYDRATE
     Indication: Seasonal allergy
     Dosage: UNK UNK, PRN (180 DOSE)

REACTIONS (2)
  - Underdose [Unknown]
  - Product prescribing issue [Unknown]
